FAERS Safety Report 12276034 (Version 1)
Quarter: 2016Q2

REPORT INFORMATION
  Report Type: Spontaneous
  Country: US (occurrence: None)
  Receive Date: 20160415
  Receipt Date: 20160415
  Transmission Date: 20160815
  Serious: No
  Sender: FDA-Public Use
  Company Number: None

PATIENT
  Age: 21 Year
  Sex: Female

DRUGS (1)
  1. STELARA [Suspect]
     Active Substance: USTEKINUMAB
     Indication: PSORIATIC ARTHROPATHY
     Dosage: 45MG EVERY 12 WEEKS SQ
     Route: 058
     Dates: start: 20150917

REACTIONS (2)
  - Fatigue [None]
  - Tachycardia [None]

NARRATIVE: CASE EVENT DATE: 20160413
